FAERS Safety Report 9697049 (Version 2)
Quarter: 2014Q1

REPORT INFORMATION
  Report Type: Spontaneous
  Country: IT (occurrence: IT)
  Receive Date: 20131120
  Receipt Date: 20140115
  Transmission Date: 20141002
  Serious: Yes (Hospitalization)
  Sender: FDA-Public Use
  Company Number: IT-JNJFOC-20131107506

PATIENT
  Age: 60 Year
  Sex: Male

DRUGS (9)
  1. IBUPROFEN (UNSPECIFIED) [Suspect]
     Route: 048
  2. IBUPROFEN (UNSPECIFIED) [Suspect]
     Indication: PAIN
     Route: 048
     Dates: start: 20130910, end: 20130929
  3. ACETYLSALICYLIC ACID [Suspect]
     Indication: MYOCARDIAL ISCHAEMIA
     Route: 048
     Dates: start: 20130101, end: 20131001
  4. EFFIENT [Suspect]
     Indication: MYOCARDIAL ISCHAEMIA
     Route: 048
     Dates: start: 20130101, end: 20131001
  5. ANGIZEM [Concomitant]
     Indication: PRODUCT USED FOR UNKNOWN INDICATION
     Route: 065
     Dates: start: 20130928, end: 20131001
  6. ATORVASTATIN CALCIUM [Concomitant]
     Indication: PRODUCT USED FOR UNKNOWN INDICATION
     Route: 065
  7. AMIODARONE HCL [Concomitant]
     Indication: PRODUCT USED FOR UNKNOWN INDICATION
     Route: 065
  8. PANTOPRAZOLE SODIUM [Concomitant]
     Indication: PRODUCT USED FOR UNKNOWN INDICATION
     Route: 065
     Dates: start: 20130928, end: 20131001
  9. VALSARTAN [Concomitant]
     Indication: PRODUCT USED FOR UNKNOWN INDICATION
     Route: 065

REACTIONS (2)
  - Anaemia [Recovering/Resolving]
  - Melaena [Recovering/Resolving]
